FAERS Safety Report 16022351 (Version 1)
Quarter: 2019Q1

REPORT INFORMATION
  Report Type: Report from Study
  Country: US (occurrence: US)
  Receive Date: 20190301
  Receipt Date: 20190301
  Transmission Date: 20190418
  Serious: Yes (Hospitalization)
  Sender: FDA-Public Use
  Company Number: PHHY2019US045676

PATIENT
  Age: 71 Year
  Sex: Male

DRUGS (11)
  1. AFINITOR [Suspect]
     Active Substance: EVEROLIMUS
     Dosage: 5 MG, BID
     Route: 048
     Dates: start: 20180803
  2. KAYEXALATE [Concomitant]
     Active Substance: SODIUM POLYSTYRENE SULFONATE
     Indication: BLOOD POTASSIUM ABNORMAL
     Dosage: 15 MG, (15G/60) QD
     Route: 065
     Dates: start: 20180515
  3. SYNTHROID [Concomitant]
     Active Substance: LEVOTHYROXINE SODIUM
     Indication: PRODUCT USED FOR UNKNOWN INDICATION
     Dosage: 50 MG, QD
     Route: 065
  4. AFINITOR [Suspect]
     Active Substance: EVEROLIMUS
     Indication: RENAL CELL CARCINOMA
     Dosage: 10 MG, QD
     Route: 048
     Dates: start: 20180505, end: 20180712
  5. PROPRANOLOL HYDROCHLORIDE. [Concomitant]
     Active Substance: PROPRANOLOL HYDROCHLORIDE
     Indication: HYPERTENSION
     Dosage: 80 MG, QD
     Route: 048
     Dates: start: 20150701
  6. LEVAQUIN [Concomitant]
     Active Substance: LEVOFLOXACIN
     Indication: BACTERIAL INFECTION
     Dosage: 750 MG, QD
     Route: 048
     Dates: start: 20180531, end: 20180610
  7. HYGROTON [Concomitant]
     Active Substance: CHLORTHALIDONE
     Indication: OEDEMA PERIPHERAL
     Dosage: UNK
     Route: 048
     Dates: start: 20180225
  8. INDERAL [Concomitant]
     Active Substance: PROPRANOLOL HYDROCHLORIDE
     Indication: HYPERTENSION
     Dosage: 80 MG, BID
     Route: 048
  9. SULAR [Concomitant]
     Active Substance: NISOLDIPINE
     Indication: HYPERTENSION
     Dosage: 17 MG, QD
     Route: 048
  10. MAGNESIUM [Concomitant]
     Active Substance: MAGNESIUM
     Indication: HYPOMAGNESAEMIA
     Dosage: 30 MG, QD
     Route: 048
     Dates: start: 20170108
  11. SULAR [Concomitant]
     Active Substance: NISOLDIPINE
     Dosage: 17 MG, QHS
     Route: 048

REACTIONS (12)
  - Pneumonitis [Recovered/Resolved]
  - Feeling cold [Recovered/Resolved]
  - Haemoglobin decreased [Unknown]
  - Cough [Recovered/Resolved]
  - Monocyte count increased [Unknown]
  - Dyspnoea [Unknown]
  - Lymphocyte count decreased [Unknown]
  - Pleural effusion [Unknown]
  - Electrocardiogram ST segment depression [Unknown]
  - Left ventricular hypertrophy [Unknown]
  - Atrioventricular block first degree [Unknown]
  - Pneumonia [Recovered/Resolved]

NARRATIVE: CASE EVENT DATE: 2018
